FAERS Safety Report 18053390 (Version 1)
Quarter: 2020Q3

REPORT INFORMATION
  Report Type: Spontaneous
  Country: US (occurrence: US)
  Receive Date: 20200721
  Receipt Date: 20200721
  Transmission Date: 20201103
  Serious: No
  Sender: FDA-Public Use
  Company Number: None

PATIENT
  Age: 64 Year
  Sex: Female
  Weight: 58 kg

DRUGS (13)
  1. ALBUTEROL INHALER [Concomitant]
     Active Substance: ALBUTEROL
     Dates: start: 20200704, end: 20200712
  2. RISPERIDONE. [Concomitant]
     Active Substance: RISPERIDONE
     Dates: start: 20200707, end: 20200712
  3. REMDESIVIR. [Suspect]
     Active Substance: REMDESIVIR
     Indication: COVID-19
     Route: 040
     Dates: start: 20200705, end: 20200709
  4. ZINC SULFATE. [Concomitant]
     Active Substance: ZINC SULFATE
     Dates: start: 20200704, end: 20200712
  5. CHOLECALCIFEROL [Concomitant]
     Active Substance: CHOLECALCIFEROL
     Dates: start: 20200704, end: 20200712
  6. RIVAROXABAN [Suspect]
     Active Substance: RIVAROXABAN
     Indication: EMBOLISM VENOUS
     Route: 048
     Dates: start: 20200706, end: 20200707
  7. AZITHROMYCIN ANHYDROUS. [Concomitant]
     Active Substance: AZITHROMYCIN ANHYDROUS
     Dates: start: 20200704, end: 20200708
  8. GABAPENTIN. [Concomitant]
     Active Substance: GABAPENTIN
     Dates: start: 20200705, end: 20200712
  9. INSULIN [Concomitant]
     Active Substance: INSULIN NOS
     Dates: start: 20200704, end: 20200712
  10. TIOTROPIUM [Concomitant]
     Active Substance: TIOTROPIUM
     Dates: start: 20200704, end: 20200712
  11. ASCORBIC ACID. [Concomitant]
     Active Substance: ASCORBIC ACID
     Dates: start: 20200704, end: 20200712
  12. CEFTRIAXONE. [Concomitant]
     Active Substance: CEFTRIAXONE
     Dates: start: 20200704, end: 20200708
  13. PANTOPRAZOLE [Concomitant]
     Active Substance: PANTOPRAZOLE
     Dates: start: 20200704, end: 20200712

REACTIONS (1)
  - International normalised ratio increased [None]

NARRATIVE: CASE EVENT DATE: 20200707
